FAERS Safety Report 5385209-5 (Version None)
Quarter: 2007Q3

REPORT INFORMATION
  Report Type: 
  Country: None (occurrence: None)
  Receive Date: 20070712
  Receipt Date: 20070705
  Transmission Date: 20080115
  Serious: Yes (Hospitalization)
  Sender: FDA-Public Use
  Company Number: US-BRACCO-BDI-009651

PATIENT
  Sex: Female

DRUGS (13)
  1. ISOVUE-300 [Suspect]
     Route: 033
     Dates: start: 20070531, end: 20070531
  2. ISOVUE-300 [Suspect]
     Route: 033
     Dates: start: 20070531, end: 20070531
  3. ALLOPURINOL [Concomitant]
     Dosage: AT BED TIME
     Route: 050
  4. ASPIRIN [Concomitant]
     Route: 050
  5. ATENOLOL [Concomitant]
     Route: 050
  6. CALCIUM                            /00009901/ [Concomitant]
     Route: 050
  7. CARDIZEM CD [Concomitant]
     Route: 050
  8. ENALAPRIL MALEATE [Concomitant]
     Route: 050
  9. EPOGEN [Concomitant]
     Dosage: 100 UNITS/KG
     Route: 058
  10. LASIX [Concomitant]
     Route: 050
  11. PAXIL [Concomitant]
     Route: 050
  12. TRAZODONE HCL [Concomitant]
     Route: 050
  13. VYTORIN [Concomitant]
     Route: 050

REACTIONS (1)
  - PERITONITIS [None]
